FAERS Safety Report 5057885-8 (Version None)
Quarter: 2006Q3

REPORT INFORMATION
  Report Type: 
  Country: None (occurrence: None)
  Receive Date: 20060721
  Receipt Date: 20060327
  Transmission Date: 20061208
  Serious: Yes (Other)
  Sender: FDA-Public Use
  Company Number: US-GLAXOSMITHKLINE-A0599142A

PATIENT
  Age: 57 Year
  Sex: Female

DRUGS (4)
  1. AVANDIA [Suspect]
     Dosage: 4MG TWICE PER DAY
     Route: 048
     Dates: start: 20040501, end: 20050821
  2. AVANDAMET [Suspect]
     Dosage: 4MG PER DAY
     Route: 048
  3. METFORMIN [Concomitant]
  4. AMARYL [Concomitant]

REACTIONS (3)
  - MACULAR OEDEMA [None]
  - SWELLING [None]
  - WEIGHT INCREASED [None]
